FAERS Safety Report 6517487-0 (Version None)
Quarter: 2009Q4

REPORT INFORMATION
  Report Type: 
  Country: None (occurrence: None)
  Receive Date: 20091224
  Receipt Date: 20091214
  Transmission Date: 20100525
  Serious: Yes (Other)
  Sender: FDA-Public Use
  Company Number: US-CELGENEUS-163-21880-09092128

PATIENT
  Sex: Male

DRUGS (5)
  1. REVLIMID [Suspect]
     Indication: MULTIPLE MYELOMA
     Route: 048
     Dates: start: 20081010, end: 20090919
  2. ALLOPURINOL [Concomitant]
     Route: 065
  3. CELEXA [Concomitant]
     Indication: DEPRESSION
     Route: 065
  4. ZANTAC [Concomitant]
     Route: 065
  5. METOPROLOL TARTRATE [Concomitant]
     Indication: HYPERTENSION
     Route: 065

REACTIONS (5)
  - ATRIAL FIBRILLATION [None]
  - DIZZINESS [None]
  - MULTIPLE MYELOMA [None]
  - MUSCULAR WEAKNESS [None]
  - PAIN IN EXTREMITY [None]
